FAERS Safety Report 8019694-7 (Version None)
Quarter: 2012Q1

REPORT INFORMATION
  Report Type: 
  Country: None (occurrence: None)
  Receive Date: 20120103
  Receipt Date: 20111227
  Transmission Date: 20120608
  Serious: Yes (Hospitalization)
  Sender: FDA-Public Use
  Company Number: US-GLAXOSMITHKLINE-A0958218A

PATIENT
  Age: 40 Year
  Sex: Female

DRUGS (1)
  1. FLOLAN [Suspect]
     Indication: PULMONARY ARTERIAL HYPERTENSION
     Dosage: 59NGKM PER DAY
     Route: 042
     Dates: start: 20070207

REACTIONS (3)
  - URINE OUTPUT DECREASED [None]
  - DYSPNOEA [None]
  - ASTHENIA [None]
